FAERS Safety Report 12863587 (Version 1)
Quarter: 2016Q4

REPORT INFORMATION
  Report Type: Spontaneous
  Country: GB (occurrence: GB)
  Receive Date: 20161019
  Receipt Date: 20161019
  Transmission Date: 20170207
  Serious: Yes (Hospitalization, Other)
  Sender: FDA-Public Use
  Company Number: GB-ASTRAZENECA-2016SF07910

PATIENT

DRUGS (2)
  1. VANCOMYCIN [Suspect]
     Active Substance: VANCOMYCIN
     Route: 042
  2. MEROPENEM. [Suspect]
     Active Substance: MEROPENEM
     Route: 042

REACTIONS (3)
  - Lip swelling [Unknown]
  - Flushing [Unknown]
  - Blood pressure immeasurable [Unknown]
